FAERS Safety Report 7426399-X (Version None)
Quarter: 2011Q2

REPORT INFORMATION
  Report Type: 
  Country: None (occurrence: None)
  Receive Date: 20110420
  Receipt Date: 20110419
  Transmission Date: 20111010
  Serious: Yes (Hospitalization)
  Sender: FDA-Public Use
  Company Number: TW-PFIZER INC-2006049828

PATIENT
  Age: 63 Year
  Sex: Male
  Weight: 69 kg

DRUGS (4)
  1. SUNITINIB MALATE [Suspect]
     Indication: METASTATIC RENAL CELL CARCINOMA
     Dosage: 50 MG, 1X/DAY
     Route: 048
     Dates: start: 20060227, end: 20060326
  2. MORPHINE HYDROCHLORIDE [Concomitant]
     Route: 048
     Dates: start: 20060327
  3. DOMPERIDONE [Concomitant]
     Route: 048
     Dates: start: 20060327
  4. NAPROXEN [Concomitant]
     Route: 048
     Dates: start: 20060327

REACTIONS (3)
  - HAEMOGLOBIN DECREASED [None]
  - BONE PAIN [None]
  - PNEUMONIA [None]
